FAERS Safety Report 5926147-6 (Version None)
Quarter: 2008Q4

REPORT INFORMATION
  Report Type: 
  Country: None (occurrence: None)
  Receive Date: 20081017
  Receipt Date: 20081006
  Transmission Date: 20090506
  Serious: Yes (Hospitalization, Other)
  Sender: FDA-Public Use
  Company Number: 2005BI015409

PATIENT
  Sex: Female
  Weight: 96.6162 kg

DRUGS (8)
  1. AVONEX [Suspect]
     Indication: MULTIPLE SCLEROSIS
     Dosage: 30 UG;QW;IM
     Route: 030
     Dates: start: 19980901, end: 20030101
  2. AVONEX [Suspect]
     Indication: MULTIPLE SCLEROSIS
     Dosage: 30 UG;QW;IM
     Route: 030
     Dates: start: 20030101
  3. BENICAR [Concomitant]
  4. AMANTADINE HCL [Concomitant]
  5. LOVASTATIN [Concomitant]
  6. FLUOXETINE [Concomitant]
  7. GLUCOSAMINE [Concomitant]
  8. MULTI-VITAMIN [Concomitant]

REACTIONS (7)
  - BASAL CELL CARCINOMA [None]
  - CEREBROVASCULAR ACCIDENT [None]
  - GASTROOESOPHAGEAL REFLUX DISEASE [None]
  - HYPERCHOLESTEROLAEMIA [None]
  - HYPERTENSION [None]
  - OVARIAN EPITHELIAL CANCER [None]
  - TRIGEMINAL NEURALGIA [None]
